FAERS Safety Report 9574785 (Version 1)
Quarter: 2013Q4

REPORT INFORMATION
  Report Type: Spontaneous
  Country: US (occurrence: US)
  Receive Date: 20131001
  Receipt Date: 20131001
  Transmission Date: 20140711
  Serious: No
  Sender: FDA-Public Use
  Company Number: US-BANPHARM-20131505

PATIENT
  Age: 63 Year
  Sex: Male
  Weight: 65.77 kg

DRUGS (1)
  1. LOPERAMIDE HCL CAPSULES, 2 MG [Suspect]
     Indication: DIARRHOEA
     Dosage: 4 DF 1ST DAY, THEN 3 DF, QD,
     Route: 048
     Dates: start: 20130712, end: 20130714

REACTIONS (1)
  - Drug ineffective [Unknown]
